FAERS Safety Report 9964359 (Version 3)
Quarter: 2014Q2

REPORT INFORMATION
  Report Type: Report from Study
  Country: AU (occurrence: AU)
  Receive Date: 20140305
  Receipt Date: 20140401
  Transmission Date: 20141212
  Serious: Yes (Hospitalization)
  Sender: FDA-Public Use
  Company Number: AU-GLAXOSMITHKLINE-B0971749A

PATIENT
  Age: 74 Year
  Sex: Male
  Weight: 80 kg

DRUGS (28)
  1. PAZOPANIB [Suspect]
     Indication: METASTATIC RENAL CELL CARCINOMA
     Route: 048
     Dates: start: 20130702
  2. EVEROLIMUS [Suspect]
     Indication: RENAL CANCER METASTATIC
     Dosage: 10MG PER DAY
     Route: 048
     Dates: start: 20140122, end: 20140209
  3. COVERSYL [Concomitant]
     Indication: HYPERTENSION
     Route: 048
     Dates: start: 20100101, end: 201311
  4. NEXIUM [Concomitant]
     Indication: GASTROOESOPHAGEAL REFLUX DISEASE
     Route: 048
     Dates: start: 20100101
  5. DEPTRAN [Concomitant]
     Indication: DEPRESSION
     Route: 048
     Dates: start: 19820101, end: 20131101
  6. DIAMICRON [Concomitant]
     Indication: DIABETES MELLITUS
     Route: 048
     Dates: start: 20120101
  7. DIABEX [Concomitant]
     Indication: DIABETES MELLITUS
     Route: 048
     Dates: start: 20120101
  8. SIMVASTATIN [Concomitant]
     Indication: HYPERCHOLESTEROLAEMIA
     Route: 048
  9. IMODIUM [Concomitant]
     Indication: DIARRHOEA
     Route: 048
     Dates: start: 20130701
  10. DEXAMETHASONE [Concomitant]
     Indication: DECREASED APPETITE
     Route: 048
     Dates: start: 20131028, end: 20140217
  11. CITALOPRAM [Concomitant]
     Indication: DEPRESSION
     Route: 048
     Dates: start: 20131201
  12. ASPIRIN [Concomitant]
     Indication: THROMBOSIS PROPHYLAXIS
     Route: 048
     Dates: start: 20140219, end: 20140301
  13. LORAZEPAM [Concomitant]
     Indication: DELIRIUM
     Route: 048
     Dates: start: 20140218
  14. MAGMIN [Concomitant]
     Indication: HYPOMAGNESAEMIA
     Route: 048
     Dates: start: 20140219, end: 20140301
  15. CALAMINE LOTION [Concomitant]
     Indication: RASH PAPULAR
     Route: 061
     Dates: start: 20140223, end: 20140223
  16. PARACETAMOL [Concomitant]
     Indication: PAIN IN EXTREMITY
     Route: 048
     Dates: start: 20140222, end: 20140223
  17. AUGMENTIN DUO [Concomitant]
     Indication: URINARY TRACT INFECTION
     Route: 048
     Dates: start: 20140225, end: 20140304
  18. SLOW K [Concomitant]
     Indication: HYPOKALAEMIA
     Route: 048
     Dates: start: 20140219, end: 20140301
  19. CALTRATE [Concomitant]
     Indication: HYPOCALCAEMIA
     Route: 048
     Dates: start: 201402, end: 201402
  20. FLUCLOXACILLIN [Concomitant]
     Indication: ERYTHEMA
     Route: 042
     Dates: start: 20140222, end: 20140223
  21. OSTELIN [Concomitant]
     Indication: VITAMIN D DECREASED
     Route: 048
     Dates: start: 20140227, end: 20140306
  22. OSTELIN [Concomitant]
     Indication: VITAMIN D
     Route: 048
     Dates: start: 20140307
  23. SALT [Concomitant]
     Indication: HYPONATRAEMIA
     Route: 048
     Dates: start: 20140302
  24. HALOPERIDOL [Concomitant]
     Indication: DELIRIUM
     Route: 048
     Dates: start: 20140303
  25. MULTIVITAMIN [Concomitant]
     Indication: DECREASED APPETITE
     Route: 048
     Dates: start: 20140219, end: 20140301
  26. ZOLEDRONIC ACID [Concomitant]
     Indication: HYPERCALCAEMIA
     Route: 042
     Dates: start: 20140228, end: 20140228
  27. ZOLEDRONIC ACID [Concomitant]
     Indication: HYPERCALCAEMIA
     Route: 042
     Dates: start: 20140305, end: 20140305
  28. MAGNESIUM [Concomitant]
     Indication: HYPOMAGNESAEMIA
     Route: 042
     Dates: start: 20140218, end: 20140219

REACTIONS (1)
  - Dehydration [Recovered/Resolved]
